FAERS Safety Report 17835101 (Version 1)
Quarter: 2020Q2

REPORT INFORMATION
  Report Type: Spontaneous
  Country: IE (occurrence: IE)
  Receive Date: 20200528
  Receipt Date: 20200528
  Transmission Date: 20200714
  Serious: Yes (Hospitalization)
  Sender: FDA-Public Use
  Company Number: IE-MYLANLABS-2020M1051634

PATIENT
  Age: 69 Year
  Sex: Male

DRUGS (1)
  1. CLOPIDOGREL [Suspect]
     Active Substance: CLOPIDOGREL BISULFATE
     Indication: PRODUCT USED FOR UNKNOWN INDICATION
     Route: 065

REACTIONS (4)
  - Peritonitis [Unknown]
  - Gastrointestinal necrosis [Recovering/Resolving]
  - Retroperitoneal haematoma [Recovering/Resolving]
  - Intestinal ischaemia [Recovering/Resolving]
